FAERS Safety Report 10500146 (Version 4)
Quarter: 2017Q2

REPORT INFORMATION
  Report Type: Spontaneous
  Country: US (occurrence: US)
  Receive Date: 20141006
  Receipt Date: 20170503
  Transmission Date: 20170829
  Serious: Yes (Death, Hospitalization)
  Sender: FDA-Public Use
  Company Number: US-BIOMARINAP-US-2014-104289

PATIENT
  Sex: Female

DRUGS (2)
  1. ALDURAZYME [Suspect]
     Active Substance: LARONIDASE
     Indication: MUCOPOLYSACCHARIDOSIS I
     Dosage: 53 MG, QW
     Route: 041
     Dates: start: 20140523, end: 20161014
  2. ALDURAZYME [Suspect]
     Active Substance: LARONIDASE
     Indication: MUCOPOLYSACCHARIDOSIS I
     Dosage: 60.9 MG, QW
     Route: 041
     Dates: start: 20090226

REACTIONS (9)
  - Oedema peripheral [Unknown]
  - Anaemia [Not Recovered/Not Resolved]
  - Post procedural complication [Fatal]
  - Splenomegaly [Unknown]
  - Syncope [Not Recovered/Not Resolved]
  - Heart valve incompetence [Not Recovered/Not Resolved]
  - Fatigue [Not Recovered/Not Resolved]
  - Weight increased [Unknown]
  - Aortic valve disease [Fatal]
